FAERS Safety Report 8710760 (Version 2)
Quarter: 2012Q4

REPORT INFORMATION
  Report Type: 
  Country: US (occurrence: US)
  Receive Date: 20120807
  Receipt Date: 20120902
  Transmission Date: 20130627
  Serious: No
  Sender: FDA-Public Use
  Company Number: US-009507513-1207USA006957

PATIENT

DRUGS (1)
  1. VICTRELIS [Suspect]
     Dosage: 800 mg, tid
     Dates: start: 20120118

REACTIONS (2)
  - Fatigue [Unknown]
  - Dry skin [Unknown]
